FAERS Safety Report 7914107-5 (Version None)
Quarter: 2011Q4

REPORT INFORMATION
  Report Type: 
  Country: None (occurrence: None)
  Receive Date: 20111115
  Receipt Date: 20111104
  Transmission Date: 20120403
  Serious: Yes (Hospitalization)
  Sender: FDA-Public Use
  Company Number: US-BAYER-201031856NA

PATIENT
  Age: 41 Year
  Sex: Female
  Weight: 70.748 kg

DRUGS (8)
  1. SYNTHROID [Concomitant]
     Dosage: UNK
     Route: 048
     Dates: start: 20000101
  2. YASMIN [Suspect]
     Indication: PRODUCT USED FOR UNKNOWN INDICATION
     Dosage: UNK
     Dates: start: 20060401, end: 20080901
  3. YASMIN [Suspect]
     Dosage: UNK
     Dates: start: 20081101, end: 20081101
  4. LEVOXYL [Concomitant]
     Dosage: UNK
     Route: 048
     Dates: start: 20000101
  5. DROSPIRENONE AND ETHINYL ESTRADIOL [Suspect]
     Indication: CONTRACEPTION
     Dosage: UNK
     Dates: start: 20081001, end: 20081001
  6. ONE-A-DAY [MINERALS NOS,VITAMINS NOS] [Concomitant]
     Dosage: UNK
     Route: 048
     Dates: start: 20081001, end: 20081101
  7. SYNTHROID [Concomitant]
     Dosage: UNK
     Route: 048
     Dates: start: 20081117, end: 20081217
  8. PROMETHAZINE [Concomitant]
     Indication: MULTIPLE ALLERGIES
     Dosage: UNK
     Route: 048
     Dates: start: 20081121, end: 20081206

REACTIONS (3)
  - ANXIETY [None]
  - CEREBROVASCULAR ACCIDENT [None]
  - DEPRESSION [None]
